FAERS Safety Report 5649495-6 (Version None)
Quarter: 2008Q1

REPORT INFORMATION
  Report Type: 
  Country: None (occurrence: None)
  Receive Date: 20080304
  Receipt Date: 20080221
  Transmission Date: 20080703
  Serious: Yes (Congenital Anomaly)
  Sender: FDA-Public Use
  Company Number: US-PFIZER INC-2007080751

PATIENT
  Sex: Female
  Weight: 2.945 kg

DRUGS (4)
  1. VIRACEPT [Suspect]
     Indication: HIV INFECTION
     Dosage: TEXT:2 TABLETS
     Route: 048
  2. SUSTIVA [Suspect]
     Indication: HIV INFECTION
     Dosage: DAILY DOSE:600MG
     Route: 048
     Dates: end: 20070627
  3. EPIVIR [Suspect]
     Indication: HIV INFECTION
     Dosage: DAILY DOSE:2500MG
     Route: 048
     Dates: start: 20070627, end: 20070627
  4. KALETRA [Suspect]
     Indication: HIV INFECTION
     Dosage: TEXT:4 TABLETS
     Route: 048

REACTIONS (4)
  - AMNIOTIC BAND SYNDROME [None]
  - CLEFT LIP AND PALATE [None]
  - DISORDER OF GLOBE [None]
  - DRUG EXPOSURE DURING PREGNANCY [None]
